FAERS Safety Report 9915622 (Version 1)
Quarter: 2014Q1

REPORT INFORMATION
  Report Type: Spontaneous
  Country: US (occurrence: None)
  Receive Date: 20140219
  Receipt Date: 20140219
  Transmission Date: 20141002
  Serious: Yes (Hospitalization, Other)
  Sender: FDA-Public Use
  Company Number: None

PATIENT
  Age: 71 Year
  Sex: Male
  Weight: 88 kg

DRUGS (5)
  1. NP THYROID [Suspect]
     Indication: HYPOTHYROIDISM
     Route: 048
     Dates: start: 20140104, end: 20140125
  2. 8 MG ASPIRIN [Concomitant]
  3. SIMPLY RIGHT 50+ MULTIVITAMIN [Concomitant]
  4. GLUCOSAMINE HCL [Concomitant]
  5. MSM [Concomitant]

REACTIONS (12)
  - Hypertension [None]
  - Heart rate decreased [None]
  - Discomfort [None]
  - Chest discomfort [None]
  - Chest pain [None]
  - Heart rate irregular [None]
  - Anxiety [None]
  - Insomnia [None]
  - Muscle spasms [None]
  - Muscle spasms [None]
  - Sensation of heaviness [None]
  - Temperature intolerance [None]
